FAERS Safety Report 15349413 (Version 2)
Quarter: 2018Q4

REPORT INFORMATION
  Report Type: Spontaneous
  Country: US (occurrence: US)
  Receive Date: 20180904
  Receipt Date: 20181008
  Transmission Date: 20190204
  Serious: No
  Sender: FDA-Public Use
  Company Number: US-SA-2018SA247264

PATIENT
  Age: 63 Year
  Sex: Male
  Weight: 72.57 kg

DRUGS (2)
  1. ASPERCREME WITH LIDOCAINE [Suspect]
     Active Substance: LIDOCAINE
     Indication: ANALGESIC THERAPY
     Dosage: UNK UNK, BID
     Dates: start: 20180830, end: 20180830
  2. ASPERCREME MAX NO MESS ROLL ON [Concomitant]
     Active Substance: MENTHOL
     Indication: LIGAMENT SPRAIN
     Dosage: UNK UNK, TID
     Dates: start: 20180825, end: 20180915

REACTIONS (1)
  - Drug ineffective [Unknown]

NARRATIVE: CASE EVENT DATE: 20180830
